FAERS Safety Report 17659283 (Version 1)
Quarter: 2020Q2

REPORT INFORMATION
  Report Type: Spontaneous
  Country: US (occurrence: US)
  Receive Date: 20200413
  Receipt Date: 20200413
  Transmission Date: 20200713
  Serious: No
  Sender: FDA-Public Use
  Company Number: US-BION-008255

PATIENT
  Age: 60 Year
  Sex: Female
  Weight: 91 kg

DRUGS (2)
  1. ALEVE EASY OPEN ARTHRITIS CAP [Suspect]
     Active Substance: NAPROXEN SODIUM
     Indication: BACK PAIN
     Route: 048
     Dates: end: 20190910
  2. ALEVE BACK AND MUSCLE PAIN TABLETS 200CT [Concomitant]
     Indication: BACK PAIN
     Route: 048
     Dates: end: 20190910

REACTIONS (1)
  - Incorrect product administration duration [Not Recovered/Not Resolved]
